FAERS Safety Report 23926583 (Version 2)
Quarter: 2024Q3

REPORT INFORMATION
  Report Type: Report from Study
  Country: US (occurrence: None)
  Receive Date: 20240531
  Receipt Date: 20240723
  Transmission Date: 20241017
  Serious: Yes (Life-Threatening, Disabling, Other)
  Sender: ASTRAZENECA
  Company Number: 2024A125680

PATIENT
  Age: 65 Year
  Sex: Male

DRUGS (3)
  1. BREZTRI [Suspect]
     Active Substance: BUDESONIDE\FORMOTEROL\GLYCOPYRROLATE
     Route: 055
  2. ALBUTEROL [Concomitant]
     Active Substance: ALBUTEROL
     Indication: Dyspnoea
  3. AMLODIPINE BESYLATE\BENAZEPRIL HYDROCHLORIDE [Concomitant]
     Active Substance: AMLODIPINE BESYLATE\BENAZEPRIL HYDROCHLORIDE

REACTIONS (19)
  - Cerebrovascular accident [Unknown]
  - Visual impairment [Unknown]
  - Respiratory failure [Unknown]
  - Emphysema [Unknown]
  - Granuloma [Unknown]
  - Lymph node calcification [Unknown]
  - Memory impairment [Unknown]
  - Sleep apnoea syndrome [Unknown]
  - Hypoxia [Unknown]
  - General physical health deterioration [Unknown]
  - Impaired work ability [Unknown]
  - Pulmonary mass [Unknown]
  - Intervertebral disc compression [Unknown]
  - Dyspnoea exertional [Unknown]
  - Weight decreased [Unknown]
  - Chronic obstructive pulmonary disease [Unknown]
  - Pulmonary calcification [Unknown]
  - Arteriosclerosis coronary artery [Unknown]
  - Aortic arteriosclerosis [Unknown]
